FAERS Safety Report 15898166 (Version 1)
Quarter: 2019Q1

REPORT INFORMATION
  Report Type: Report from Study
  Country: IT (occurrence: SA)
  Receive Date: 20190201
  Receipt Date: 20190201
  Transmission Date: 20190417
  Serious: Yes (Other)
  Sender: FDA-Public Use
  Company Number: IT-TEVA-2019-IT-1003292

PATIENT
  Age: 72 Year
  Sex: Male

DRUGS (2)
  1. ISOSORBIDE DINITRATE. [Suspect]
     Active Substance: ISOSORBIDE DINITRATE
     Indication: PRODUCT USED FOR UNKNOWN INDICATION
     Route: 065
  2. ISOSORBIDE DINITRATE (ER) [Suspect]
     Active Substance: ISOSORBIDE\ISOSORBIDE DINITRATE
     Indication: PRODUCT USED FOR UNKNOWN INDICATION
     Dosage: 40 MG THRICE A DAY ON ADMISSION (EXTENDED RELEASE TABLET)
     Route: 065

REACTIONS (3)
  - Accidental overdose [None]
  - Product prescribing error [Unknown]
  - Wrong dosage formulation [None]
